FAERS Safety Report 25262509 (Version 1)
Quarter: 2025Q2

REPORT INFORMATION
  Report Type: Report from Study
  Country: US (occurrence: US)
  Receive Date: 20250502
  Receipt Date: 20250502
  Transmission Date: 20250716
  Serious: No
  Sender: SANDOZ
  Company Number: US-002147023-NVSC2023US016858

PATIENT
  Age: 16 Year
  Sex: Male

DRUGS (4)
  1. OMNITROPE [Suspect]
     Active Substance: SOMATROPIN
     Indication: Short stature
     Dosage: 0.67 ML, QD
     Route: 058
     Dates: start: 20230122
  2. OMNITROPE [Suspect]
     Active Substance: SOMATROPIN
     Indication: Short stature
     Dosage: 0.67 ML, QD
     Route: 058
     Dates: start: 20230122
  3. OMNITROPE [Suspect]
     Active Substance: SOMATROPIN
     Dosage: 0.68 ML, QD
     Route: 058
     Dates: start: 20231211
  4. OMNITROPE [Suspect]
     Active Substance: SOMATROPIN
     Dosage: 0.68 ML, QD
     Route: 058
     Dates: start: 20231211

REACTIONS (3)
  - Injection site pain [Unknown]
  - Incorrect route of product administration [Unknown]
  - Circumstance or information capable of leading to medication error [Unknown]

NARRATIVE: CASE EVENT DATE: 20230123
